FAERS Safety Report 9309949 (Version 2)
Quarter: 2013Q4

REPORT INFORMATION
  Report Type: Spontaneous
  Country: US (occurrence: US)
  Receive Date: 20130527
  Receipt Date: 20131202
  Transmission Date: 20140711
  Serious: Yes (Hospitalization, Other)
  Sender: FDA-Public Use
  Company Number: US-AMGEN-USASP2013036714

PATIENT
  Age: 38 Year
  Sex: Female
  Weight: 139.23 kg

DRUGS (2)
  1. ENBREL [Suspect]
     Indication: RHEUMATOID ARTHRITIS
     Dosage: 50 MG, QWK
     Route: 065
     Dates: start: 20081231
  2. FLU [Concomitant]
     Dosage: UNK

REACTIONS (3)
  - Gestational hypertension [Recovered/Resolved]
  - Prolonged labour [Recovered/Resolved]
  - Cervical incompetence [Unknown]
